FAERS Safety Report 25899038 (Version 2)
Quarter: 2025Q4

REPORT INFORMATION
  Report Type: Spontaneous
  Country: EU (occurrence: EU)
  Receive Date: 20251009
  Receipt Date: 20251111
  Transmission Date: 20260118
  Serious: Yes (Hospitalization, Other)
  Sender: CELLTRION
  Company Number: EU-CELLTRION INC.-2025GR036068

PATIENT

DRUGS (7)
  1. RITUXIMAB [Suspect]
     Active Substance: RITUXIMAB
     Indication: B-cell lymphoma
     Dosage: FOUR CYCLES OF CHEMOTHERAPY WITH  THE R-CHOP REGIMEN
     Dates: start: 202208, end: 202212
  2. RITUXIMAB [Suspect]
     Active Substance: RITUXIMAB
     Dosage: MAINTENANCE THERAPY, EVERY 2 MONTHS
     Dates: start: 2023, end: 202411
  3. CYCLOPHOSPHAMIDE [Suspect]
     Active Substance: CYCLOPHOSPHAMIDE
     Indication: B-cell lymphoma
     Dosage: FOUR CYCLES OF CHEMOTHERAPY WITH THE R-CHOP REGIMEN
  4. IDARUBICIN [Suspect]
     Active Substance: IDARUBICIN
     Indication: B-cell lymphoma
     Dosage: FOUR CYCLES OF CHEMOTHERAPY WITH THE R-CHOP REGIMEN
  5. VINCRISTINE [Suspect]
     Active Substance: VINCRISTINE
     Indication: B-cell lymphoma
     Dosage: FOUR CYCLES OF CHEMOTHERAPY WITH THE R-CHOP REGIMEN
  6. PREDNISONE [Suspect]
     Active Substance: PREDNISONE
     Indication: B-cell lymphoma
     Dosage: FOUR CYCLES OF CHEMOTHERAPY WITH THE R-CHOP REGIMEN
  7. VIDAZA [Suspect]
     Active Substance: AZACITIDINE
     Indication: B-cell lymphoma
     Dosage: UNK

REACTIONS (1)
  - Acute myeloid leukaemia [Unknown]

NARRATIVE: CASE EVENT DATE: 20241101
